FAERS Safety Report 25686438 (Version 1)
Quarter: 2025Q3

REPORT INFORMATION
  Report Type: Spontaneous
  Country: TR (occurrence: TR)
  Receive Date: 20250815
  Receipt Date: 20250815
  Transmission Date: 20251021
  Serious: Yes (Hospitalization, Other)
  Sender: PHARMACEUTICAL ASSOC
  Company Number: TR-PAIPHARMA-2025-TR-000027

PATIENT
  Age: 73 Year
  Sex: Male

DRUGS (3)
  1. RISPERIDONE [Suspect]
     Active Substance: RISPERIDONE
     Indication: Behaviour disorder
  2. SERTRALINE [Suspect]
     Active Substance: SERTRALINE HYDROCHLORIDE
     Indication: Behaviour disorder
  3. ASPIRIN [Concomitant]
     Active Substance: ASPIRIN

REACTIONS (2)
  - Myoclonus [Recovered/Resolved]
  - Drug interaction [Recovered/Resolved]
